FAERS Safety Report 8243863-4 (Version None)
Quarter: 2012Q1

REPORT INFORMATION
  Report Type: 
  Country: None (occurrence: None)
  Receive Date: 20120329
  Receipt Date: 20110321
  Transmission Date: 20120608
  Serious: No
  Sender: FDA-Public Use
  Company Number: US-MYLANLABS-2011S1003265

PATIENT
  Age: 46 Year
  Sex: Female

DRUGS (2)
  1. ESTROGEN NOS [Concomitant]
     Dosage: OTC
  2. ESTRADIOL [Suspect]
     Indication: HORMONE REPLACEMENT THERAPY
     Dosage: Q WEEKLY
     Route: 062
     Dates: start: 20110101

REACTIONS (3)
  - APPLICATION SITE IRRITATION [None]
  - APPLICATION SITE ERYTHEMA [None]
  - APPLICATION SITE PRURITUS [None]
